FAERS Safety Report 8020369-9 (Version None)
Quarter: 2012Q1

REPORT INFORMATION
  Report Type: 
  Country: None (occurrence: None)
  Receive Date: 20120103
  Receipt Date: 20111222
  Transmission Date: 20120608
  Serious: Yes (Hospitalization, Other)
  Sender: FDA-Public Use
  Company Number: US-ELI_LILLY_AND_COMPANY-US201112007262

PATIENT
  Sex: Female

DRUGS (14)
  1. VITAMIN D [Concomitant]
     Dosage: 1000 IU, QD
  2. PLAVIX [Concomitant]
     Dosage: UNK, QD
  3. PREDNISONE TAB [Concomitant]
     Dosage: UNK, QD
  4. PROAIR HFA [Concomitant]
     Dosage: UNK, OTHER
  5. CALCIUM ACETATE [Concomitant]
     Dosage: UNK, QD
  6. LIPITOR [Concomitant]
     Dosage: UNK, QD
  7. METOPROLOL TARTRATE [Concomitant]
     Dosage: UNK, QD
  8. MUCINEX [Concomitant]
     Dosage: UNK, QD|
  9. SPIRIVA [Concomitant]
  10. MOXIFLOXACIN [Concomitant]
     Dosage: UNK, QD
  11. NORVASC [Concomitant]
     Dosage: UNK, QD
  12. ADVAIR DISKUS 100/50 [Concomitant]
     Dosage: UNK, QD
  13. FORTEO [Suspect]
     Indication: OSTEOPOROSIS
     Dosage: 20 UG, QD
     Dates: start: 20111021
  14. COUMADIN [Concomitant]
     Dosage: UNK, QD

REACTIONS (2)
  - LUNG INFECTION [None]
  - PNEUMONIA [None]
